FAERS Safety Report 21177581 (Version 2)
Quarter: 2022Q3

REPORT INFORMATION
  Report Type: Spontaneous
  Country: JP (occurrence: JP)
  Receive Date: 20220805
  Receipt Date: 20220815
  Transmission Date: 20221027
  Serious: No
  Sender: FDA-Public Use
  Company Number: JP-PFIZER INC-PV202200035108

PATIENT
  Age: 76 Year
  Sex: Female

DRUGS (1)
  1. PAXLOVID [Suspect]
     Active Substance: NIRMATRELVIR\RITONAVIR
     Indication: COVID-19 treatment
     Dosage: [PF-07321332 150 MG]/[RITONAVIR 100 MG]
     Route: 048
     Dates: start: 20220801

REACTIONS (1)
  - Intercepted product prescribing error [Unknown]

NARRATIVE: CASE EVENT DATE: 20220801
